FAERS Safety Report 10618558 (Version 1)
Quarter: 2014Q4

REPORT INFORMATION
  Report Type: Spontaneous
  Country: US (occurrence: None)
  Receive Date: 20141125
  Receipt Date: 20141125
  Transmission Date: 20150529
  Serious: Yes (Death, Life-Threatening, Other)
  Sender: FDA-Public Use
  Company Number: 2013-US-002395

PATIENT
  Age: 73 Year
  Sex: Male

DRUGS (1)
  1. XYREM [Suspect]
     Active Substance: SODIUM OXYBATE
     Indication: NARCOLEPSY
     Route: 048
     Dates: start: 200704, end: 200705

REACTIONS (3)
  - Cardio-respiratory arrest [None]
  - Throat tightness [None]
  - Myocardial infarction [None]

NARRATIVE: CASE EVENT DATE: 20131018
